FAERS Safety Report 5510396-5 (Version None)
Quarter: 2007Q4

REPORT INFORMATION
  Report Type: 
  Country: None (occurrence: None)
  Receive Date: 20071108
  Receipt Date: 20071029
  Transmission Date: 20080405
  Serious: Yes (Congenital Anomaly)
  Sender: FDA-Public Use
  Company Number: CZ-PFIZER INC-2007057591

PATIENT
  Sex: Male

DRUGS (1)
  1. EPIRUBICIN HYDROCHLORIDE [Suspect]
     Indication: BREAST CANCER

REACTIONS (2)
  - DRUG EXPOSURE DURING PREGNANCY [None]
  - RECTAL ATRESIA [None]
